FAERS Safety Report 9660983 (Version 1)
Quarter: 2013Q4

REPORT INFORMATION
  Report Type: Spontaneous
  Country: GB (occurrence: GB)
  Receive Date: 20131031
  Receipt Date: 20131031
  Transmission Date: 20140711
  Serious: Yes (Hospitalization)
  Sender: FDA-Public Use
  Company Number: GB-TEVA-440855ISR

PATIENT
  Age: 94 Year
  Sex: Male

DRUGS (13)
  1. WARFARIN [Suspect]
     Route: 048
     Dates: end: 20131007
  2. ALENDRONIC ACID [Suspect]
     Route: 048
  3. CALCIUM CARBONATE [Concomitant]
  4. RAMIPRIL [Concomitant]
  5. BUMETANIDE [Concomitant]
  6. OMEPRAZOLE [Concomitant]
  7. OMEPRAZOLE [Concomitant]
     Dosage: ON ADMISSION
  8. LACTULOSE [Concomitant]
  9. CO-CODAMOL [Concomitant]
  10. GTN [Concomitant]
  11. ATENOLOL [Concomitant]
  12. SIMVASTATIN [Concomitant]
  13. FERROUS FUMARATE [Concomitant]

REACTIONS (5)
  - Gastrointestinal haemorrhage [Recovering/Resolving]
  - Haematemesis [Unknown]
  - Hiatus hernia [Unknown]
  - Melaena [Unknown]
  - Varices oesophageal [Unknown]
